FAERS Safety Report 23335756 (Version 1)
Quarter: 2023Q4

REPORT INFORMATION
  Report Type: Other
  Country: ES (occurrence: None)
  Receive Date: 20231225
  Receipt Date: 20231225
  Transmission Date: 20240110
  Serious: Yes (Other)
  Sender: FDA-Public Use
  Company Number: ES-ROCHE-3479215

PATIENT

DRUGS (1)
  1. ATEZOLIZUMAB [Suspect]
     Active Substance: ATEZOLIZUMAB
     Indication: Alveolar soft part sarcoma
     Route: 065

REACTIONS (10)
  - Alanine aminotransferase increased [Unknown]
  - Aspartate aminotransferase increased [Unknown]
  - Pneumonitis [Unknown]
  - Arthritis [Unknown]
  - Pancreatitis [Unknown]
  - Colitis [Unknown]
  - Fatigue [Unknown]
  - Haematotoxicity [Unknown]
  - Skin toxicity [Unknown]
  - Seizure [Unknown]
